FAERS Safety Report 8145693-0 (Version None)
Quarter: 2012Q1

REPORT INFORMATION
  Report Type: 
  Country: None (occurrence: None)
  Receive Date: 20120217
  Receipt Date: 20110627
  Transmission Date: 20120608
  Serious: No
  Sender: FDA-Public Use
  Company Number: US-ALLERGAN-1108655US

PATIENT
  Age: 22 Year
  Sex: Female
  Weight: 52.154 kg

DRUGS (1)
  1. TAZORAC [Suspect]
     Indication: ACNE

REACTIONS (1)
  - ACNE [None]
